FAERS Safety Report 8045693-5 (Version None)
Quarter: 2012Q1

REPORT INFORMATION
  Report Type: 
  Country: None (occurrence: None)
  Receive Date: 20120112
  Receipt Date: 20120112
  Transmission Date: 20120608
  Serious: No
  Sender: FDA-Public Use
  Company Number: None

PATIENT
  Age: 71 Year
  Sex: Male
  Weight: 76.3 kg

DRUGS (1)
  1. TELAPREVIR [Suspect]
     Indication: HEPATITIS C
     Dosage: MG PO
     Route: 048
     Dates: start: 20111130

REACTIONS (7)
  - DYSPNOEA [None]
  - RASH PRURITIC [None]
  - DYSGEUSIA [None]
  - URTICARIA [None]
  - PRURITUS [None]
  - INSOMNIA [None]
  - PROCTALGIA [None]
